FAERS Safety Report 9698202 (Version 1)
Quarter: 2013Q4

REPORT INFORMATION
  Report Type: Spontaneous
  Country: JP (occurrence: JP)
  Receive Date: 20131120
  Receipt Date: 20131120
  Transmission Date: 20140711
  Serious: Yes (Other)
  Sender: FDA-Public Use
  Company Number: JP-BRISTOL-MYERS SQUIBB COMPANY-19806942

PATIENT
  Age: 88 Year
  Sex: Female
  Weight: 52 kg

DRUGS (7)
  1. PARAPLATIN INJ [Suspect]
     Route: 042
     Dates: start: 20131031, end: 20131031
  2. TAXOL INJ [Suspect]
     Route: 042
  3. CHLOR-TRIMETON [Concomitant]
     Dosage: INJ
     Route: 042
  4. GASTER [Concomitant]
  5. DECADRON [Concomitant]
  6. ALOXI [Concomitant]
     Dosage: INJ
     Route: 042
  7. SALINE [Concomitant]

REACTIONS (1)
  - Rash [Recovering/Resolving]
